FAERS Safety Report 25999719 (Version 1)
Quarter: 2025Q4

REPORT INFORMATION
  Report Type: Spontaneous
  Country: JP (occurrence: JP)
  Receive Date: 20251105
  Receipt Date: 20251105
  Transmission Date: 20260118
  Serious: Yes (Death, Life-Threatening, Hospitalization)
  Sender: STRIDES
  Company Number: None

PATIENT
  Age: 8 Decade
  Sex: Male
  Weight: 51.5 kg

DRUGS (7)
  1. PREDNISOLONE [Suspect]
     Active Substance: PREDNISOLONE
     Indication: Prophylaxis
     Dosage: 30 MILLIGRAM, QD TAPERED 5 MG PER 1-2 WEEK.
     Route: 048
  2. PREDNISOLONE [Suspect]
     Active Substance: PREDNISOLONE
     Dosage: 25 MILLIGRAM, QD TAPERED 5 MG PER 1-2 WEEK.
     Route: 048
  3. PREDNISOLONE [Suspect]
     Active Substance: PREDNISOLONE
     Dosage: 20 MILLIGRAM QD TAPERED 5 MG PER 1-2 WEEK.
     Route: 048
  4. PREDNISOLONE [Suspect]
     Active Substance: PREDNISOLONE
     Dosage: 15 MILLIGRAM QD  TAPERED 5 MG PER 1-2 WEEK.
     Route: 048
  5. FUROSEMIDE [Concomitant]
     Active Substance: FUROSEMIDE
     Indication: Ascites
     Dosage: UNK
     Route: 065
  6. SPIRONOLACTONE [Concomitant]
     Active Substance: SPIRONOLACTONE
     Indication: Ascites
     Dosage: UNK
     Route: 065
  7. TOLVAPTAN [Concomitant]
     Active Substance: TOLVAPTAN
     Indication: Ascites
     Dosage: UNK
     Route: 065

REACTIONS (7)
  - Cardiac ventricular thrombosis [Fatal]
  - Intestinal ischaemia [Fatal]
  - Mesenteric venous occlusion [Fatal]
  - Intestinal perforation [Fatal]
  - Ascites [Unknown]
  - Condition aggravated [Unknown]
  - Off label use [Unknown]
